FAERS Safety Report 5052078-2 (Version None)
Quarter: 2006Q3

REPORT INFORMATION
  Report Type: 
  Country: None (occurrence: None)
  Receive Date: 20060711
  Receipt Date: 20060630
  Transmission Date: 20061208
  Serious: Yes (Life-Threatening)
  Sender: FDA-Public Use
  Company Number: 200610634BFR

PATIENT
  Age: 79 Year
  Sex: Male

DRUGS (3)
  1. CIFLOX (CIPROFLOXACIN) [Suspect]
     Indication: GASTROENTERITIS
     Dosage: INTRAVENOUS
     Route: 042
     Dates: start: 20060609, end: 20060610
  2. CIFLOX (CIPROFLOXACIN) [Suspect]
     Indication: GASTROENTERITIS
     Dosage: ORAL
     Route: 048
     Dates: start: 20060611, end: 20060614
  3. COUMADIN [Suspect]
     Dosage: 2 MG, QD, ORAL
     Route: 048
     Dates: end: 20060612

REACTIONS (6)
  - ANAEMIA [None]
  - DIVERTICULUM INTESTINAL [None]
  - DRUG INTERACTION [None]
  - PROTHROMBIN TIME SHORTENED [None]
  - RECTAL HAEMORRHAGE [None]
  - SHOCK [None]
